FAERS Safety Report 7623318-8 (Version None)
Quarter: 2011Q3

REPORT INFORMATION
  Report Type: 
  Country: None (occurrence: None)
  Receive Date: 20110720
  Receipt Date: 20110711
  Transmission Date: 20111222
  Serious: Yes (Life-Threatening, Hospitalization)
  Sender: FDA-Public Use
  Company Number: US-ROCHE-776484

PATIENT
  Sex: Male
  Weight: 77 kg

DRUGS (11)
  1. BEVACIZUMAB [Suspect]
     Indication: GLIOBLASTOMA MULTIFORME
     Dosage: HELD BECAUSE OF WOUND
     Route: 042
     Dates: end: 20110422
  2. TEMODAR [Suspect]
     Indication: GLIOBLASTOMA MULTIFORME
     Dosage: 100 MG
     Route: 065
  3. ASCORBIC ACID [Concomitant]
  4. SAHA [Suspect]
     Indication: GLIOBLASTOMA MULTIFORME
     Dosage: FREQUENCY: ONE WEEK ON , ONE WEEEK OFF. THERAPY HELD
     Route: 065
     Dates: end: 20110422
  5. KEPPRA [Concomitant]
  6. ANDRODERM [Concomitant]
     Dosage: PATCH 5 MG DAILY
  7. KLOR-CON [Concomitant]
     Dosage: DAILY
  8. LOVENOX [Concomitant]
  9. ULTRAM [Concomitant]
     Route: 048
  10. CORTEF [Concomitant]
     Dosage: 20 MG AM 10 MG PM
  11. SERTRALINE HYDROCHLORIDE [Concomitant]
     Dosage: FREQUECNY QHS

REACTIONS (4)
  - GAIT DISTURBANCE [None]
  - ATAXIA [None]
  - FATIGUE [None]
  - HAEMORRHAGIC STROKE [None]
